FAERS Safety Report 12655083 (Version 2)
Quarter: 2016Q3

REPORT INFORMATION
  Report Type: Spontaneous
  Country: US (occurrence: US)
  Receive Date: 20160816
  Receipt Date: 20160822
  Transmission Date: 20161109
  Serious: Yes (Other)
  Sender: FDA-Public Use
  Company Number: US-PFIZER INC-2016387153

PATIENT
  Age: 60 Year
  Sex: Female

DRUGS (2)
  1. XANAX [Suspect]
     Active Substance: ALPRAZOLAM
     Indication: ANXIETY
     Dosage: 1 MG, AS NEEDED AT NIGHT
     Dates: start: 2006
  2. NEURONTIN [Suspect]
     Active Substance: GABAPENTIN
     Dosage: 2 DF, DAILY AT NIGHT

REACTIONS (4)
  - Cardiovascular disorder [Unknown]
  - Anxiety [Unknown]
  - Hypersomnia [Unknown]
  - Hypertension [Unknown]
